FAERS Safety Report 6751174-9 (Version None)
Quarter: 2010Q2

REPORT INFORMATION
  Report Type: 
  Country: None (occurrence: None)
  Receive Date: 20100602
  Receipt Date: 20100525
  Transmission Date: 20101027
  Serious: Yes (Hospitalization)
  Sender: FDA-Public Use
  Company Number: US-JNJFOC-20100509805

PATIENT
  Age: 58 Year
  Sex: Female
  Weight: 89.72 kg

DRUGS (12)
  1. LEVAQUIN [Suspect]
     Indication: DRUG USE FOR UNKNOWN INDICATION
     Route: 065
  2. RADIOTHERAPY [Suspect]
     Indication: DRUG USE FOR UNKNOWN INDICATION
     Dosage: 37.5 GY/15 FRACTIONS
     Route: 065
  3. DECADRON [Suspect]
     Indication: DRUG USE FOR UNKNOWN INDICATION
     Route: 065
  4. MS CONTIN [Suspect]
     Indication: DRUG USE FOR UNKNOWN INDICATION
     Route: 065
  5. REMERON [Suspect]
     Indication: DRUG USE FOR UNKNOWN INDICATION
     Route: 065
  6. DILANTIN [Suspect]
     Indication: DRUG USE FOR UNKNOWN INDICATION
     Route: 065
  7. KEPPRA [Suspect]
     Indication: DRUG USE FOR UNKNOWN INDICATION
     Route: 065
  8. REGLAN [Suspect]
     Indication: DRUG USE FOR UNKNOWN INDICATION
     Route: 065
  9. ADVAIR DISKUS 100/50 [Suspect]
     Indication: DRUG USE FOR UNKNOWN INDICATION
     Route: 065
  10. ALBUTEROL [Suspect]
     Indication: DRUG USE FOR UNKNOWN INDICATION
     Route: 065
  11. SPIRIVA [Suspect]
     Indication: DRUG USE FOR UNKNOWN INDICATION
     Route: 065
  12. MEMANTINE [Suspect]
     Indication: COGNITIVE DISORDER
     Dosage: WK 1=5MG-AM, WK 2= 5MG-AM + 5MG-PM, WK 3= 10MG IN AM + 5 MG IN PM, WK 4= 10MG IN AM + 10MG IN PM
     Route: 065

REACTIONS (1)
  - PULMONARY EMBOLISM [None]
